FAERS Safety Report 14189650 (Version 2)
Quarter: 2019Q1

REPORT INFORMATION
  Report Type: Spontaneous
  Country: US (occurrence: US)
  Receive Date: 20171115
  Receipt Date: 20190309
  Transmission Date: 20190417
  Serious: Yes (Other)
  Sender: FDA-Public Use
  Company Number: PHEH2017US036458

PATIENT
  Sex: Male

DRUGS (1)
  1. TASIGNA [Suspect]
     Active Substance: NILOTINIB
     Indication: CHRONIC MYELOID LEUKAEMIA
     Dosage: 400 MG, BID
     Route: 048
     Dates: start: 20130523

REACTIONS (12)
  - Peripheral vascular disorder [Unknown]
  - Muscle spasms [Unknown]
  - Coronary artery disease [Unknown]
  - Depression [Unknown]
  - Dyslipidaemia [Unknown]
  - Myalgia [Unknown]
  - Myocardial ischaemia [Unknown]
  - Benign prostatic hyperplasia [Unknown]
  - Neuromuscular pain [Unknown]
  - Arthropathy [Unknown]
  - Anxiety [Unknown]
  - Arthralgia [Unknown]

NARRATIVE: CASE EVENT DATE: 2015
